FAERS Safety Report 6092912-0 (Version None)
Quarter: 2009Q1

REPORT INFORMATION
  Report Type: 
  Country: None (occurrence: None)
  Receive Date: 20090225
  Receipt Date: 20090219
  Transmission Date: 20090719
  Serious: Yes (Other)
  Sender: FDA-Public Use
  Company Number: US-ALLERGAN-0902264US

PATIENT
  Sex: Female

DRUGS (10)
  1. COMBIGAN [Suspect]
     Indication: GLAUCOMA
     Dosage: UNK, BID
     Route: 047
  2. GLYBURIDE [Concomitant]
     Dosage: 5 MG, QD
  3. ALPRAZOLAM [Concomitant]
     Dosage: 0.25 MG, PRN
  4. MICARDIS [Concomitant]
     Dosage: 10 MG, QD
  5. TRIAMTERENE AND HYDROCHLOROTHIAZIDE [Concomitant]
     Dosage: 75/50 MG, QD
  6. METOPROLOL [Concomitant]
     Dosage: 25 MG, QD
  7. METHYLPREDNISOLONE 4MG TAB [Concomitant]
     Dosage: 28 MG, QD
  8. WELLBUTRIN [Concomitant]
     Dosage: 150 MG, QD
  9. ZOCOR [Concomitant]
     Dosage: 10 MG, QD
  10. ALLOPURINOL [Concomitant]
     Dosage: 100 MG, BID

REACTIONS (1)
  - MUSCULAR WEAKNESS [None]
